FAERS Safety Report 6869044-4 (Version None)
Quarter: 2010Q3

REPORT INFORMATION
  Report Type: 
  Country: None (occurrence: None)
  Receive Date: 20100722
  Receipt Date: 20080623
  Transmission Date: 20110219
  Serious: Yes (Other)
  Sender: FDA-Public Use
  Company Number: US-PFIZER INC-2008054293

PATIENT
  Sex: Female
  Weight: 57.727 kg

DRUGS (1)
  1. CHANTIX [Suspect]
     Indication: EX-TOBACCO USER
     Dates: start: 20071101, end: 20080101

REACTIONS (15)
  - ABNORMAL DREAMS [None]
  - ARTHROPATHY [None]
  - BLOOD CHOLESTEROL INCREASED [None]
  - CONSTIPATION [None]
  - DEPRESSION [None]
  - DIZZINESS [None]
  - HYPERSEXUALITY [None]
  - HYPOAESTHESIA [None]
  - INSOMNIA [None]
  - MOUTH ULCERATION [None]
  - MYALGIA [None]
  - OEDEMA PERIPHERAL [None]
  - VISUAL ACUITY REDUCED [None]
  - VITAMIN D DECREASED [None]
  - WEIGHT INCREASED [None]
